FAERS Safety Report 8854113 (Version 2)
Quarter: 2013Q1

REPORT INFORMATION
  Report Type: Spontaneous
  Country: US (occurrence: None)
  Receive Date: 20121018
  Receipt Date: 20121205
  Transmission Date: 20140127
  Serious: Yes (Hospitalization, Other)
  Sender: FDA-Public Use
  Company Number: AUR-APL-2012-04434

PATIENT
  Age: 50 Year
  Sex: Male

DRUGS (2)
  1. VALACYCLOVIR [Suspect]
     Indication: PRODUCT USED FOR UNKNOWN INDICATION
     Dosage: ORAL
     Route: 048
  2. FINGOLIMOD [Suspect]
     Indication: MULTIPLE SCLEROSIS

REACTIONS (9)
  - Herpes zoster [None]
  - Convulsion [None]
  - Coma [None]
  - Viral vasculitis [None]
  - Renal failure acute [None]
  - Herpes simplex meningoencephalitis [None]
  - Brain stem infarction [None]
  - Quadriparesis [None]
  - Lymphocyte count decreased [None]
